FAERS Safety Report 25978929 (Version 1)
Quarter: 2025Q4

REPORT INFORMATION
  Report Type: Spontaneous
  Country: CN (occurrence: CN)
  Receive Date: 20251030
  Receipt Date: 20251030
  Transmission Date: 20260118
  Serious: Yes (Hospitalization)
  Sender: MACLEODS
  Company Number: CN-MLMSERVICE-20251009-PI671381-00296-1

PATIENT

DRUGS (9)
  1. SILDENAFIL [Suspect]
     Active Substance: SILDENAFIL
     Indication: Pulmonary hypertension
     Route: 065
     Dates: start: 202405, end: 2025
  2. SILDENAFIL [Suspect]
     Active Substance: SILDENAFIL
     Indication: Skin ulcer
  3. AMBRISENTAN [Suspect]
     Active Substance: AMBRISENTAN
     Indication: Pulmonary hypertension
     Route: 065
     Dates: start: 2024, end: 2025
  4. AMBRISENTAN [Suspect]
     Active Substance: AMBRISENTAN
     Indication: Skin ulcer
  5. PREDNISONE [Concomitant]
     Active Substance: PREDNISONE
     Indication: Pulmonary hypertension
     Route: 065
     Dates: start: 202405, end: 2024
  6. PREDNISONE [Concomitant]
     Active Substance: PREDNISONE
     Route: 065
     Dates: start: 202405
  7. CYCLOSPORINE [Concomitant]
     Active Substance: CYCLOSPORINE
     Indication: Pulmonary hypertension
     Dosage: 100 MG IN THE MORNING AND 50 MG IN THE EVENING
     Route: 065
     Dates: start: 202405
  8. METHYLPREDNISOLONE [Concomitant]
     Active Substance: METHYLPREDNISOLONE
     Route: 042
     Dates: start: 2024
  9. MYCOPHENOLATE MOFETIL [Concomitant]
     Active Substance: MYCOPHENOLATE MOFETIL
     Route: 065
     Dates: start: 2024

REACTIONS (1)
  - Meigs^ syndrome [Recovering/Resolving]

NARRATIVE: CASE EVENT DATE: 20250101
